FAERS Safety Report 6648156-4 (Version None)
Quarter: 2010Q1

REPORT INFORMATION
  Report Type: 
  Country: None (occurrence: None)
  Receive Date: 20100324
  Receipt Date: 20100311
  Transmission Date: 20100710
  Serious: Yes (Hospitalization)
  Sender: FDA-Public Use
  Company Number: US-ELI_LILLY_AND_COMPANY-US201003003752

PATIENT
  Age: 59 Year
  Sex: Female

DRUGS (5)
  1. PROZAC [Suspect]
     Indication: OBSESSIVE-COMPULSIVE DISORDER
     Dosage: 20 MG, DAILY (1/D)
  2. PRILOSEC [Concomitant]
  3. NORTRIPTYLINE HCL [Concomitant]
  4. VERAPAMIL [Concomitant]
  5. VICODIN [Concomitant]

REACTIONS (2)
  - ARNOLD-CHIARI MALFORMATION [None]
  - GASTRECTOMY [None]
